FAERS Safety Report 13968588 (Version 1)
Quarter: 2017Q3

REPORT INFORMATION
  Report Type: Spontaneous
  Country: US (occurrence: US)
  Receive Date: 20170914
  Receipt Date: 20170914
  Transmission Date: 20171128
  Serious: Yes (Hospitalization)
  Sender: FDA-Public Use
  Company Number: US-VIFOR (INTERNATIONAL) INC.-VIT-2017-09374

PATIENT
  Sex: Male

DRUGS (14)
  1. MAPAP [Concomitant]
     Active Substance: ACETAMINOPHEN
  2. NAPROXEN. [Concomitant]
     Active Substance: NAPROXEN
  3. NOVOLOG [Concomitant]
     Active Substance: INSULIN ASPART
  4. NYSTOP [Concomitant]
     Active Substance: NYSTATIN
  5. FLUOXETINE HYDROCHLORIDE. [Concomitant]
     Active Substance: FLUOXETINE HYDROCHLORIDE
  6. VELTASSA [Suspect]
     Active Substance: PATIROMER
     Indication: PRODUCT USED FOR UNKNOWN INDICATION
     Route: 048
  7. ATORVASTATIN CALCIUM. [Concomitant]
     Active Substance: ATORVASTATIN CALCIUM
  8. GABAPENTIN. [Concomitant]
     Active Substance: GABAPENTIN
  9. DIPHENHYDRAMINE HYDROCHLORIDE. [Concomitant]
     Active Substance: DIPHENHYDRAMINE HYDROCHLORIDE
  10. MIDODRINE HYDROCHLORIDE. [Concomitant]
     Active Substance: MIDODRINE HYDROCHLORIDE
  11. GENERLAC [Concomitant]
     Active Substance: LACTULOSE
  12. MELATONIN [Concomitant]
     Active Substance: MELATONIN
  13. ONDANSETRON HCL [Concomitant]
     Active Substance: ONDANSETRON HYDROCHLORIDE
  14. BUTRANS [Concomitant]
     Active Substance: BUPRENORPHINE

REACTIONS (1)
  - Hospitalisation [Unknown]
